FAERS Safety Report 4587939-1 (Version None)
Quarter: 2005Q1

REPORT INFORMATION
  Report Type: 
  Country: None (occurrence: None)
  Receive Date: 20050215
  Receipt Date: 20050201
  Transmission Date: 20050727
  Serious: Yes (Life-Threatening, Other)
  Sender: FDA-Public Use
  Company Number: 2005-BP-01443BR

PATIENT
  Age: 63 Year
  Sex: Female

DRUGS (3)
  1. MOVATEC                  (MELOXICAM) [Suspect]
     Indication: BONE PAIN
     Dosage: 15 MG (15MG, 1 AMP)
     Dates: start: 20050129, end: 20050130
  2. CAPOTEX              (NON-SPECIFIED SUBSTANCE) [Concomitant]
  3. OLCADIL            (CLOXAZOLAM) [Concomitant]

REACTIONS (2)
  - BLOOD PRESSURE INCREASED [None]
  - CHEST PAIN [None]
